FAERS Safety Report 19841503 (Version 1)
Quarter: 2021Q3

REPORT INFORMATION
  Report Type: Spontaneous
  Country: NL (occurrence: NL)
  Receive Date: 20210916
  Receipt Date: 20210916
  Transmission Date: 20211014
  Serious: Yes (Death, Life-Threatening, Hospitalization)
  Sender: FDA-Public Use
  Company Number: NL-TEVA-2021-NL-1951703

PATIENT
  Age: 68 Year
  Sex: Female
  Weight: 78 kg

DRUGS (6)
  1. LORAZEPAM TABLET 1MG / BRAND NAME NOT SPECIFIED [Concomitant]
     Dosage: UNIT DOSE: 2 DF, THERAPY START DATE: ASKU, THERAPY END DATE :ASKU
  2. ESOMEPRAZOL TABLET MSR 40MG / BRAND NAME NOT SPECIFIED [Concomitant]
     Dosage: 40 MILLIGRAM DAILY; THERAPY START DATE: ASKU, THERAPY END DATE :ASKU
  3. OXALIPLATINE INFOPL CONC 5MG/ML / BRAND NAME NOT SPECIFIED [Suspect]
     Active Substance: OXALIPLATIN
     Indication: COLON CANCER
     Dosage: 190 MG
     Dates: start: 20210622, end: 20210702
  4. MACROGOL/ZOUTEN PDR V DRANK (MOVICOLON+GENERIEK) / BRAND NAME NOT SPEC [Concomitant]
     Dosage: 1 TO 2 X PER DAY 1 PIECE, UNIT DOSE: 1 DF,THERAPY START DATE: ASKU, THERAPY END DATE :ASKU
  5. CAPECITABINE TABLET FO 500MG / BRAND NAME NOT SPECIFIED [Suspect]
     Active Substance: CAPECITABINE
     Indication: COLON CANCER
     Dosage: 3600 MILLIGRAM DAILY;
     Dates: start: 20210622, end: 20210702
  6. LEVOTHYROXINE CAPSULE 125UG / BRAND NAME NOT SPECIFIED [Concomitant]
     Dosage: 125 MICROGRAM DAILY; THERAPY START DATE: ASKU, THERAPY END DATE :ASKU,?1 X PER DAY 1 PIECE ,

REACTIONS (1)
  - Stevens-Johnson syndrome [Fatal]

NARRATIVE: CASE EVENT DATE: 20210701
